FAERS Safety Report 7029016-6 (Version None)
Quarter: 2010Q4

REPORT INFORMATION
  Report Type: 
  Country: None (occurrence: None)
  Receive Date: 20101005
  Receipt Date: 20100930
  Transmission Date: 20110411
  Serious: Yes (Hospitalization)
  Sender: FDA-Public Use
  Company Number: A0884599A

PATIENT
  Sex: Male

DRUGS (1)
  1. AVANDIA [Suspect]
     Dates: start: 20020101, end: 20070101

REACTIONS (3)
  - CARDIAC FAILURE CONGESTIVE [None]
  - CEREBROVASCULAR ACCIDENT [None]
  - RENAL FAILURE [None]
